FAERS Safety Report 4599867-6 (Version None)
Quarter: 2005Q1

REPORT INFORMATION
  Report Type: 
  Country: None (occurrence: None)
  Receive Date: 20050303
  Receipt Date: 20050224
  Transmission Date: 20050727
  Serious: Yes (Hospitalization)
  Sender: FDA-Public Use
  Company Number: CIP05000453

PATIENT
  Age: 70 Year
  Sex: Female

DRUGS (2)
  1. BENET            (RISEDRONATE SODIUM) [Suspect]
     Indication: OSTEOPOROSIS
     Dosage: 2.5 MG DAILY, ORAL
     Route: 048
     Dates: start: 20040810, end: 20040811
  2. ELCITONIN    (ELCATONIN) [Concomitant]

REACTIONS (2)
  - PANCREATITIS ACUTE [None]
  - VIRAL INFECTION [None]
